FAERS Safety Report 23211778 (Version 1)
Quarter: 2023Q4

REPORT INFORMATION
  Report Type: Spontaneous
  Country: CH (occurrence: CH)
  Receive Date: 20231121
  Receipt Date: 20231121
  Transmission Date: 20240110
  Serious: Yes (Disabling, Other)
  Sender: FDA-Public Use
  Company Number: None

PATIENT
  Age: 31 Year
  Sex: Female
  Weight: 64 kg

DRUGS (11)
  1. CIPROFLOXACIN [Suspect]
     Active Substance: CIPROFLOXACIN
     Indication: Urinary tract infection
     Dosage: 500 MG N/A DOSE EVERY 2 DAY
     Route: 048
     Dates: start: 20200115, end: 20200121
  2. CIPROFLOXACIN [Suspect]
     Active Substance: CIPROFLOXACIN
     Dosage: UNK
     Route: 048
     Dates: start: 20200910, end: 20200914
  3. CIPROFLOXACIN [Suspect]
     Active Substance: CIPROFLOXACIN
     Dosage: UNK
     Route: 048
     Dates: start: 20210622, end: 20210624
  4. CIPROFLOXACIN [Suspect]
     Active Substance: CIPROFLOXACIN
     Dosage: UNK
     Route: 048
     Dates: start: 20210726, end: 20210729
  5. NORFLOXACIN [Suspect]
     Active Substance: NORFLOXACIN
     Indication: Urinary tract infection
     Dosage: 400 MG N/A DOSE EVERY 2 DAY
     Route: 048
     Dates: start: 20140704, end: 20140707
  6. NORFLOXACIN [Suspect]
     Active Substance: NORFLOXACIN
     Dosage: UNK
     Route: 048
     Dates: start: 20150507, end: 20150510
  7. NORFLOXACIN [Suspect]
     Active Substance: NORFLOXACIN
     Dosage: UNK
     Route: 048
     Dates: start: 20150515, end: 20150518
  8. NORFLOXACIN [Suspect]
     Active Substance: NORFLOXACIN
     Dosage: UNK
     Route: 048
     Dates: start: 20150601, end: 20150604
  9. NORFLOXACIN [Suspect]
     Active Substance: NORFLOXACIN
     Dosage: UNK
     Route: 048
     Dates: start: 20150715, end: 20150718
  10. NORFLOXACIN [Suspect]
     Active Substance: NORFLOXACIN
     Dosage: UNK
     Route: 048
     Dates: start: 20161026, end: 20161029
  11. NORFLOXACIN [Suspect]
     Active Substance: NORFLOXACIN
     Dosage: UNK
     Route: 048
     Dates: start: 20170120, end: 20170123

REACTIONS (9)
  - Musculoskeletal disorder [Not Recovered/Not Resolved]
  - Gastrointestinal disorder [Not Recovered/Not Resolved]
  - Tendon pain [Not Recovered/Not Resolved]
  - Ligament rupture [Not Recovered/Not Resolved]
  - Mitochondrial toxicity [Not Recovered/Not Resolved]
  - Sick leave [Recovered/Resolved]
  - Sick leave [Not Recovered/Not Resolved]
  - Musculoskeletal pain [Not Recovered/Not Resolved]
  - Tendonitis [Not Recovered/Not Resolved]

NARRATIVE: CASE EVENT DATE: 20140704
